FAERS Safety Report 7121861-1 (Version None)
Quarter: 2010Q4

REPORT INFORMATION
  Report Type: 
  Country: None (occurrence: None)
  Receive Date: 20101124
  Receipt Date: 20101116
  Transmission Date: 20110411
  Serious: Yes (Hospitalization)
  Sender: FDA-Public Use
  Company Number: PL-ROCHE-741557

PATIENT
  Sex: Male
  Weight: 88 kg

DRUGS (15)
  1. BEVACIZUMAB [Suspect]
     Indication: COLORECTAL CANCER
     Route: 042
     Dates: start: 20100812
  2. FLUOROURACIL [Suspect]
     Indication: COLORECTAL CANCER
     Route: 065
     Dates: start: 20100812
  3. OXALIPLATIN [Suspect]
     Indication: COLORECTAL CANCER
     Route: 065
     Dates: start: 20100812
  4. NITRENDIPINE [Concomitant]
     Indication: HYPERTENSION
     Dates: start: 19860101
  5. BISOPROLOL FUMARATE [Concomitant]
     Indication: HYPERTENSION
     Dates: start: 20080101
  6. VALSARTAN [Concomitant]
     Indication: HYPERTENSION
     Dates: start: 20080101
  7. INDAPAMIDE [Concomitant]
     Indication: HYPERTENSION
     Dates: start: 20080101
  8. DEXAMETHASONE SODIUM PHOSPHATE [Concomitant]
     Dates: start: 20100812
  9. ONDANSETRON HYDROCHLORIDE [Concomitant]
     Dates: start: 20100812
  10. ONDANSETRON HYDROCHLORIDE [Concomitant]
     Dosage: FREQUENCY : AS REQUIRED
     Dates: start: 20100827, end: 20100828
  11. ONDANSETRON HYDROCHLORIDE [Concomitant]
     Dosage: FREQUENCY : AS REQUIRED
     Dates: start: 20100908, end: 20100910
  12. ONDANSETRON HYDROCHLORIDE [Concomitant]
     Dosage: FREQUENCY : AS REQUIRED
     Dates: start: 20100925, end: 20100929
  13. ONDANSETRON HYDROCHLORIDE [Concomitant]
     Dates: start: 20100815, end: 20100819
  14. FUROSEMIDE [Concomitant]
     Dates: start: 20101006, end: 20101006
  15. URAPIDIL [Concomitant]
     Dosage: DAILY DOSE : 25MG/5ML DAILY
     Dates: start: 20101006, end: 20101006

REACTIONS (3)
  - CATHETER SITE PAIN [None]
  - CATHETER SITE SWELLING [None]
  - SUBCLAVIAN VEIN THROMBOSIS [None]
